FAERS Safety Report 8603053-X (Version None)
Quarter: 2012Q3

REPORT INFORMATION
  Report Type: 
  Country: None (occurrence: None)
  Receive Date: 20120817
  Receipt Date: 20120628
  Transmission Date: 20120928
  Serious: No
  Sender: FDA-Public Use
  Company Number: US-GLAXOSMITHKLINE-A0983812A

PATIENT
  Age: 81 Year
  Sex: Male
  Weight: 90.9 kg

DRUGS (4)
  1. FEOSOL [Concomitant]
     Route: 048
  2. FLOMAX [Concomitant]
     Route: 048
  3. VOTRIENT [Suspect]
     Indication: RENAL CANCER
     Dosage: 400MG PER DAY
     Route: 048
  4. FUROSEMIDE [Concomitant]
     Route: 048

REACTIONS (3)
  - NAUSEA [None]
  - FATIGUE [None]
  - FURUNCLE [None]
